FAERS Safety Report 4854202-0 (Version None)
Quarter: 2005Q4

REPORT INFORMATION
  Report Type: 
  Country: None (occurrence: None)
  Receive Date: 20051213
  Receipt Date: 20051130
  Transmission Date: 20060501
  Serious: Yes (Other)
  Sender: FDA-Public Use
  Company Number: 2005162503

PATIENT
  Sex: Male

DRUGS (3)
  1. VIAGRA [Suspect]
     Indication: ERECTILE DYSFUNCTION
     Dosage: 50 MG (50 MG,)
  2. NEURONTIN [Suspect]
     Indication: BACK PAIN
  3. ANTI-DIABETICS (ANTI-DIABETICS) [Concomitant]

REACTIONS (8)
  - BALANCE DISORDER [None]
  - BLOOD CHOLESTEROL ABNORMAL [None]
  - BLOOD TESTOSTERONE DECREASED [None]
  - CARDIAC DISORDER [None]
  - DIFFICULTY IN WALKING [None]
  - DRUG INEFFECTIVE [None]
  - OEDEMA PERIPHERAL [None]
  - TESTICULAR DISORDER [None]
